FAERS Safety Report 4357507-5 (Version None)
Quarter: 2004Q2

REPORT INFORMATION
  Report Type: 
  Country: None (occurrence: None)
  Receive Date: 20040513
  Receipt Date: 20040503
  Transmission Date: 20050107
  Serious: Yes (Hospitalization)
  Sender: FDA-Public Use
  Company Number: GB-BRISTOL-MYERS SQUIBB COMPANY-12577854

PATIENT
  Age: 67 Year
  Sex: Female
  Weight: 66 kg

DRUGS (4)
  1. PACLITAXEL [Suspect]
     Indication: BREAST CANCER
     Route: 042
     Dates: start: 20040309, end: 20040309
  2. ISTIN [Concomitant]
  3. BENDROFLUAZIDE [Concomitant]
  4. GLICLAZIDE [Concomitant]

REACTIONS (3)
  - BODY TEMPERATURE INCREASED [None]
  - PAIN IN EXTREMITY [None]
  - POLLAKIURIA [None]
